FAERS Safety Report 8935205 (Version 2)
Quarter: 2012Q4

REPORT INFORMATION
  Report Type: 
  Country: US (occurrence: US)
  Receive Date: 20121129
  Receipt Date: 20121203
  Transmission Date: 20130627
  Serious: Yes (Hospitalization, Other)
  Sender: FDA-Public Use
  Company Number: PHHY2012US108322

PATIENT
  Age: 77 Year
  Sex: Male

DRUGS (21)
  1. AMIODARONE [Suspect]
     Dosage: 400 mg, QD
     Route: 048
  2. AMIODARONE [Interacting]
     Dosage: 200 mg once daily
     Route: 048
  3. DABIGATRAN ETEXILATE [Interacting]
     Dosage: 150 mg, BID
     Route: 048
  4. DABIGATRAN ETEXILATE [Interacting]
     Dosage: 150 mg, BID
     Route: 048
  5. DABIGATRAN ETEXILATE [Interacting]
     Dosage: 150 mg, QD
     Route: 048
  6. WARFARIN [Concomitant]
  7. ASPIRIN [Concomitant]
     Dosage: 81 mg, QD
  8. CITALOPRAM [Concomitant]
     Dosage: 20 mg, QD
  9. DIGOXIN [Concomitant]
     Dosage: 0.125 mg, QD
  10. FINASTERIDE [Concomitant]
     Dosage: 5 mg, QD
  11. FUROSEMIDE [Concomitant]
     Dosage: 40 mg, QD
  12. GLIPIZIDE [Concomitant]
     Dosage: 2.5 mg, QD
  13. LISINOPRIL [Concomitant]
     Dosage: 5 mg, QD
  14. MEGESTROL ACETATE [Concomitant]
     Dosage: 400 mg, BID
  15. METOPROLOL [Concomitant]
     Dosage: 50 mg, BID
  16. MULTIPLE VITAMINS [Concomitant]
     Dosage: 1 DF, UNK
  17. PANTOPRAZOLE [Concomitant]
     Dosage: 40 mg, QD
  18. SENNA [Concomitant]
     Indication: CONSTIPATION
     Dosage: 2 DF, PRN
  19. TAMSULOSIN [Concomitant]
     Dosage: 0.4 mg, QD
  20. INSULIN LISPRO [Concomitant]
     Route: 058
  21. FLUCONAZOLE [Concomitant]
     Indication: OESOPHAGEAL CANDIDIASIS

REACTIONS (6)
  - Upper gastrointestinal haemorrhage [Recovered/Resolved]
  - Nausea [Unknown]
  - Haematemesis [Unknown]
  - International normalised ratio increased [Recovered/Resolved]
  - Activated partial thromboplastin time prolonged [Recovered/Resolved]
  - Drug interaction [Unknown]
